FAERS Safety Report 8979489 (Version 1)
Quarter: 2012Q4

REPORT INFORMATION
  Report Type: 
  Country: FR (occurrence: FR)
  Receive Date: 20121221
  Receipt Date: 20121221
  Transmission Date: 20130627
  Serious: Yes (Hospitalization)
  Sender: FDA-Public Use
  Company Number: JP-ASTRAZENECA-2012SE94400

PATIENT
  Age: 89 Year
  Sex: Male

DRUGS (6)
  1. KENZEN [Suspect]
     Indication: PRODUCT USED FOR UNKNOWN INDICATION
     Route: 048
     Dates: start: 2006, end: 20120830
  2. METFORMINE [Suspect]
     Indication: TYPE 2 DIABETES MELLITUS
     Route: 048
  3. CIFLOX [Suspect]
     Indication: SUPERINFECTION
     Dosage: EVERY DAY
     Route: 048
     Dates: start: 20120828, end: 20120830
  4. LASILIX [Suspect]
     Indication: PRODUCT USED FOR UNKNOWN INDICATION
     Route: 048
     Dates: start: 2006, end: 20120830
  5. CATAPRESSAN [Concomitant]
     Indication: PRODUCT USED FOR UNKNOWN INDICATION
  6. LEVOTHYROX [Concomitant]
     Indication: HYPOTHYROIDISM

REACTIONS (4)
  - Dehydration [Recovered/Resolved]
  - Renal failure acute [Recovered/Resolved]
  - Hyperkalaemia [Recovered/Resolved]
  - Hyponatraemia [Recovered/Resolved]
